FAERS Safety Report 6538722-9 (Version None)
Quarter: 2010Q1

REPORT INFORMATION
  Report Type: 
  Country: None (occurrence: None)
  Receive Date: 20100114
  Receipt Date: 20100114
  Transmission Date: 20100710
  Serious: Yes (Hospitalization, Other)
  Sender: FDA-Public Use
  Company Number: None

PATIENT
  Age: 57 Year
  Sex: Female

DRUGS (6)
  1. VALPROIC ACID [Suspect]
     Indication: EPILEPSY
     Dosage: 2000 MG, BID
  2. LAMOTRIGINE [Concomitant]
  3. ATENOLOL/CHLORTAL-IDONE [Concomitant]
  4. OXYBUTYNIN [Concomitant]
  5. BISACODYL [Concomitant]
  6. POTASSIUM CHLORIDE [Concomitant]

REACTIONS (4)
  - CONFUSIONAL STATE [None]
  - HYPONATRAEMIA [None]
  - MEMORY IMPAIRMENT [None]
  - SOMNOLENCE [None]
